FAERS Safety Report 5474375-9 (Version None)
Quarter: 2007Q4

REPORT INFORMATION
  Report Type: 
  Country: None (occurrence: None)
  Receive Date: 20071002
  Receipt Date: 20070925
  Transmission Date: 20080405
  Serious: Yes (Congenital Anomaly, Other)
  Sender: FDA-Public Use
  Company Number: PHEH2007US12817

PATIENT
  Sex: Female
  Weight: 1.877 kg

DRUGS (2)
  1. TRILEPTAL [Suspect]
     Route: 064
  2. ZOLOFT [Concomitant]
     Route: 064

REACTIONS (2)
  - CONGENITAL HIP DEFORMITY [None]
  - PREMATURE BABY [None]
